FAERS Safety Report 15589024 (Version 1)
Quarter: 2018Q4

REPORT INFORMATION
  Report Type: Spontaneous
  Country: US (occurrence: US)
  Receive Date: 20181106
  Receipt Date: 20181106
  Transmission Date: 20190205
  Serious: Yes (Hospitalization, Other)
  Sender: FDA-Public Use
  Company Number: US-PFIZER INC-2018446906

PATIENT
  Age: 74 Year
  Sex: Female
  Weight: 79.38 kg

DRUGS (2)
  1. BENLYSTA [Concomitant]
     Active Substance: BELIMUMAB
     Indication: SYSTEMIC LUPUS ERYTHEMATOSUS
  2. LYRICA [Suspect]
     Active Substance: PREGABALIN
     Indication: SLE ARTHRITIS
     Dosage: 75 MG, 2X/DAY
     Route: 048
     Dates: start: 201809, end: 20181024

REACTIONS (7)
  - Blood pressure increased [Unknown]
  - Head discomfort [Unknown]
  - Loss of consciousness [Recovered/Resolved]
  - Headache [Unknown]
  - Seizure [Recovered/Resolved]
  - Malaise [Unknown]
  - Product use in unapproved indication [Unknown]

NARRATIVE: CASE EVENT DATE: 20181016
